FAERS Safety Report 4604044-6 (Version None)
Quarter: 2005Q1

REPORT INFORMATION
  Report Type: 
  Country: None (occurrence: None)
  Receive Date: 20050310
  Receipt Date: 20050202
  Transmission Date: 20050727
  Serious: Yes (Death)
  Sender: FDA-Public Use
  Company Number: PHBS2005JP01795

PATIENT
  Age: 71 Year
  Sex: Male

DRUGS (10)
  1. DICLOFENAC SODIUM [Suspect]
     Dosage: 75 MG/DAY
     Route: 048
  2. MORPHINE SULFATE [Concomitant]
     Dosage: 20 MG/DAY
     Route: 048
  3. MORPHINE SULFATE [Concomitant]
     Dosage: 30 MG/DAY
     Route: 048
  4. IRINOTECAN HCL [Concomitant]
     Route: 065
  5. CISPLATIN [Concomitant]
     Route: 065
  6. HANGE-SHASHIN-TO [Concomitant]
     Dosage: 7.5 G/DAY
     Route: 048
  7. BETAMETHASONE [Concomitant]
     Indication: PROPHYLAXIS
     Dosage: 3 MG/DAY
     Route: 048
  8. BETAMETHASONE [Concomitant]
     Dosage: 5 MG/DAY
     Route: 048
  9. LOPERAMIDE HYDROCHLORIDE [Concomitant]
     Dosage: 2 MG/DAY
     Route: 048
  10. CHEMOTHERAPEUTICS,OTHER [Concomitant]

REACTIONS (7)
  - ABDOMINAL PAIN [None]
  - CONSTIPATION [None]
  - DIARRHOEA [None]
  - DUODENAL PERFORATION [None]
  - LEUKOPENIA [None]
  - MALAISE [None]
  - SURGERY [None]
